FAERS Safety Report 6811496-X (Version None)
Quarter: 2010Q2

REPORT INFORMATION
  Report Type: 
  Country: None (occurrence: None)
  Receive Date: 20100625
  Receipt Date: 20100612
  Transmission Date: 20101027
  Serious: Yes (Other)
  Sender: FDA-Public Use
  Company Number: 2010AP001226

PATIENT
  Age: 87 Year
  Sex: Male

DRUGS (2)
  1. FLUNISOLIDE [Suspect]
     Indication: RHINITIS ALLERGIC
  2. CITALOPRAM HYDROBROMIDE [Suspect]
     Indication: DEPRESSION

REACTIONS (13)
  - APATHY [None]
  - BACK PAIN [None]
  - COGNITIVE DISORDER [None]
  - CONDITION AGGRAVATED [None]
  - CRYING [None]
  - DEPRESSION [None]
  - DIABETES MELLITUS [None]
  - DISTURBANCE IN ATTENTION [None]
  - FALL [None]
  - GAIT DISTURBANCE [None]
  - MOOD ALTERED [None]
  - NAUSEA [None]
  - PSYCHOTIC DISORDER [None]
